FAERS Safety Report 7764679 (Version 3)
Quarter: 2024Q2

REPORT INFORMATION
  Report Type: Other
  Country: US (occurrence: FR)
  Receive Date: 20110119
  Receipt Date: 20240620
  Transmission Date: 20240716
  Serious: Yes (Death, Hospitalization, Other)
  Sender: FDA-Public Use
  Company Number: US-RANBAXY-2011US-40963

PATIENT
  Age: 67 Year
  Sex: Male
  Weight: 74 kg

DRUGS (11)
  1. AMOXICILLIN [Suspect]
     Active Substance: AMOXICILLIN
     Indication: Helicobacter infection
     Dosage: UNK, UNK
     Route: 048
     Dates: start: 20100424, end: 20100501
  2. CLARITHROMYCIN [Suspect]
     Active Substance: CLARITHROMYCIN
     Indication: Helicobacter infection
     Dosage: UNK, UNK
     Route: 048
     Dates: start: 20100424, end: 20100501
  3. IRBESARTAN [Suspect]
     Active Substance: IRBESARTAN
     Indication: Hypertension
     Dosage: 150 MILLIGRAM, DAILY
     Route: 048
     Dates: start: 201002
  4. ACETAMINOPHEN [Suspect]
     Active Substance: ACETAMINOPHEN
     Indication: Product used for unknown indication
     Dosage: UNK, UNK
     Route: 065
  5. VERAPAMIL HYDROCHLORIDE [Suspect]
     Active Substance: VERAPAMIL HYDROCHLORIDE
     Indication: Hypertension
     Dosage: 240 MG
     Route: 065
  6. COLCHICINE [Suspect]
     Active Substance: COLCHICINE
     Indication: Rheumatoid arthritis
     Dosage: UNK, UNK
     Route: 048
     Dates: start: 201002
  7. COLCHICINE [Suspect]
     Active Substance: COLCHICINE
     Indication: Blood uric acid increased
     Dosage: 2 TABLET/DAY THEN 1TABLET/DAY
     Route: 048
     Dates: start: 20100423, end: 20100504
  8. ESOMEPRAZOLE [Suspect]
     Active Substance: ESOMEPRAZOLE
     Indication: Helicobacter infection
     Dosage: 20 MG, BID
     Route: 048
  9. SIMVASTATIN [Suspect]
     Active Substance: SIMVASTATIN
     Indication: Product used for unknown indication
     Dosage: UNK, UNK
     Route: 065
  10. NORFLOXACIN [Suspect]
     Active Substance: NORFLOXACIN
     Indication: Product used for unknown indication
     Dosage: UNK, UNK
     Route: 065
  11. SMECTA [Suspect]
     Active Substance: MONTMORILLONITE
     Indication: Product used for unknown indication
     Dosage: UNK, UNK
     Route: 065

REACTIONS (4)
  - Neutropenia [Fatal]
  - Shock [Fatal]
  - Cardio-respiratory arrest [Fatal]
  - Aspiration [Fatal]

NARRATIVE: CASE EVENT DATE: 20100503
